FAERS Safety Report 8841932 (Version 2)
Quarter: 2013Q2

REPORT INFORMATION
  Report Type: Spontaneous
  Country: US (occurrence: US)
  Receive Date: 20121016
  Receipt Date: 20130426
  Transmission Date: 20140414
  Serious: Yes (Other)
  Sender: FDA-Public Use
  Company Number: US-BAYER-2012-106288

PATIENT
  Sex: Female

DRUGS (1)
  1. YAZ [Suspect]
     Dosage: UNK
     Dates: start: 2008, end: 201009

REACTIONS (7)
  - Biliary colic [None]
  - Biliary colic [None]
  - Biliary colic [None]
  - Pain [None]
  - Injury [None]
  - Fear of disease [None]
  - Pain [None]
